FAERS Safety Report 7638630-6 (Version None)
Quarter: 2011Q3

REPORT INFORMATION
  Report Type: 
  Country: None (occurrence: None)
  Receive Date: 20110727
  Receipt Date: 20110726
  Transmission Date: 20111222
  Serious: Yes (Hospitalization, Other)
  Sender: FDA-Public Use
  Company Number: IL-PFIZER INC-2011170247

PATIENT
  Sex: Male
  Weight: 90 kg

DRUGS (8)
  1. COUMADIN ^TARO^ [Concomitant]
     Dosage: 5 MG, 1X/DAY
     Route: 048
  2. RAMIPRIL [Concomitant]
     Dosage: 2.5 MG, 1X/DAY
     Route: 048
  3. ALDACTONE [Concomitant]
     Dosage: 25 MG, 1X/DAY
     Route: 048
  4. LIPITOR [Concomitant]
     Dosage: 80 MG, 1X/DAY
     Route: 048
  5. CARDILOC [Concomitant]
     Dosage: 2.5 MG, 1X/DAY
     Route: 048
  6. PLAVIX [Concomitant]
     Dosage: 75 MG, 1X/DAY
     Route: 048
  7. TEVAPIRIN [Concomitant]
     Dosage: 100 MG, 1X/DAY
     Route: 048
  8. VARENICLINE TARTRATE [Suspect]
     Indication: SMOKING CESSATION THERAPY
     Dosage: UNK, ONCE DAILY
     Route: 048

REACTIONS (2)
  - INTRACARDIAC THROMBUS [None]
  - MYOCARDIAL INFARCTION [None]
